FAERS Safety Report 8299299-3 (Version None)
Quarter: 2012Q2

REPORT INFORMATION
  Report Type: 
  Country: None (occurrence: None)
  Receive Date: 20120419
  Receipt Date: 20120411
  Transmission Date: 20120825
  Serious: No
  Sender: FDA-Public Use
  Company Number: US-B.I. PHARMACEUTICALS,INC./RIDGEFIELD-2012-BP-06825BP

PATIENT
  Sex: Female

DRUGS (2)
  1. SPIRIVA [Suspect]
     Indication: CHRONIC OBSTRUCTIVE PULMONARY DISEASE
     Dosage: 18 MCG
     Route: 055
     Dates: start: 20111118
  2. ASPIRIN [Concomitant]
     Dosage: 81 MG
     Route: 048

REACTIONS (10)
  - DYSPEPSIA [None]
  - DRY MOUTH [None]
  - VISION BLURRED [None]
  - DYSPHONIA [None]
  - OROPHARYNGEAL PAIN [None]
  - RHINORRHOEA [None]
  - CONSTIPATION [None]
  - CHEST DISCOMFORT [None]
  - FATIGUE [None]
  - HEART RATE INCREASED [None]
